FAERS Safety Report 10876539 (Version 1)
Quarter: 2015Q1

REPORT INFORMATION
  Report Type: Spontaneous
  Country: US (occurrence: US)
  Receive Date: 20150301
  Receipt Date: 20150301
  Transmission Date: 20150721
  Serious: No
  Sender: FDA-Public Use
  Company Number: US-TEVA-542353USA

PATIENT
  Age: 69 Year
  Sex: Female
  Weight: 74.46 kg

DRUGS (3)
  1. PROAIR HFA [Suspect]
     Active Substance: ALBUTEROL SULFATE
     Indication: BRONCHITIS
     Dosage: ONE PUFF EVERY 4-6 HOURS
     Dates: start: 20150213
  2. PROBIOTICA [Concomitant]
     Active Substance: PROBIOTICS NOS
     Indication: DIARRHOEA
  3. AZITHROMYCIN [Concomitant]
     Active Substance: AZITHROMYCIN ANHYDROUS
     Indication: BRONCHITIS

REACTIONS (1)
  - Oral pain [Unknown]

NARRATIVE: CASE EVENT DATE: 20150215
